FAERS Safety Report 5223848-2 (Version None)
Quarter: 2007Q1

REPORT INFORMATION
  Report Type: 
  Country: None (occurrence: None)
  Receive Date: 20070130
  Receipt Date: 20070123
  Transmission Date: 20070707
  Serious: Yes (Death)
  Sender: FDA-Public Use
  Company Number: PHBS2007JP01481

PATIENT
  Age: 75 Year
  Sex: Female

DRUGS (2)
  1. PREDNISOLONE [Suspect]
     Indication: INTERSTITIAL LUNG DISEASE
     Dosage: 50 MG/D
     Route: 065
  2. CYCLOSPORINE [Suspect]
     Indication: INTERSTITIAL LUNG DISEASE
     Dosage: 150 MG/D
     Route: 065

REACTIONS (1)
  - PNEUMONIA BACTERIAL [None]
